FAERS Safety Report 23688436 (Version 1)
Quarter: 2024Q1

REPORT INFORMATION
  Report Type: Spontaneous
  Country: US (occurrence: US)
  Receive Date: 20240329
  Receipt Date: 20240329
  Transmission Date: 20240410
  Serious: No
  Sender: FDA-Public Use
  Company Number: US-SANDOZ-SDZ2024US033948

PATIENT
  Sex: Female

DRUGS (1)
  1. ZARXIO [Suspect]
     Active Substance: FILGRASTIM-SNDZ
     Indication: Colon cancer
     Dosage: 300 UG 2 DOSE EVERY N/A N/A
     Route: 058
     Dates: start: 20240124, end: 20240326

REACTIONS (1)
  - Drug ineffective [Not Recovered/Not Resolved]
